FAERS Safety Report 6554415-6 (Version None)
Quarter: 2010Q1

REPORT INFORMATION
  Report Type: 
  Country: None (occurrence: None)
  Receive Date: 20100127
  Receipt Date: 20100112
  Transmission Date: 20100710
  Serious: Yes (Other)
  Sender: FDA-Public Use
  Company Number: US-B.I. PHARMACEUTICALS,INC./RIDGEFIELD-2010-DE-00159GD

PATIENT
  Sex: Female

DRUGS (1)
  1. PRAMIPEXOLE DIHYDROCHLORIDE [Suspect]
     Indication: PARKINSON'S DISEASE

REACTIONS (4)
  - DRUG WITHDRAWAL SYNDROME [None]
  - EATING DISORDER [None]
  - IMPULSE-CONTROL DISORDER [None]
  - STEREOTYPY [None]
